FAERS Safety Report 14744705 (Version 3)
Quarter: 2018Q2

REPORT INFORMATION
  Report Type: Report from Study
  Country: US (occurrence: US)
  Receive Date: 20180411
  Receipt Date: 20180418
  Transmission Date: 20180711
  Serious: Yes (Other)
  Sender: FDA-Public Use
  Company Number: US-ROCHE-2103683

PATIENT
  Sex: Male

DRUGS (4)
  1. AVASTIN [Suspect]
     Active Substance: BEVACIZUMAB
     Indication: DIABETIC RETINOPATHY
     Dosage: IN LEFT EYE
     Route: 065
  2. AVASTIN [Suspect]
     Active Substance: BEVACIZUMAB
     Indication: MACULAR OEDEMA
  3. LUCENTIS [Suspect]
     Active Substance: RANIBIZUMAB
     Indication: MACULAR OEDEMA
     Dosage: FOR LEFT EYE ;ONGOING: UNKNOWN
     Route: 065
     Dates: start: 20180405
  4. LUCENTIS [Suspect]
     Active Substance: RANIBIZUMAB
     Indication: DIABETIC RETINOPATHY
     Dosage: FOR RIGHT EYE ;ONGOING: NO
     Route: 065

REACTIONS (5)
  - Scar [Unknown]
  - Intentional product use issue [Unknown]
  - Off label use [Unknown]
  - Diabetes mellitus [Unknown]
  - Blindness unilateral [Unknown]
